FAERS Safety Report 8318599-1 (Version None)
Quarter: 2012Q1

REPORT INFORMATION
  Report Type: 
  Country: None (occurrence: None)
  Receive Date: 20120315
  Receipt Date: 20110516
  Transmission Date: 20120608
  Serious: Yes (Other)
  Sender: FDA-Public Use
  Company Number: PHHY2011US35482

PATIENT
  Age: 47 Year
  Sex: Female
  Weight: 116.1 kg

DRUGS (5)
  1. ROBAXIN [Concomitant]
  2. GILENYA [Suspect]
     Indication: MULTIPLE SCLEROSIS
     Dosage: 0.5 MG, QD, ORAL
     Route: 048
  3. NEURONTIN [Concomitant]
  4. NEXIUM /01479302/ (ESOMEPRAZOLE SODIUM) [Concomitant]
  5. SOLU-MEDROL [Concomitant]

REACTIONS (1)
  - WHITE BLOOD CELL COUNT DECREASED [None]
